FAERS Safety Report 13195577 (Version 1)
Quarter: 2017Q1

REPORT INFORMATION
  Report Type: Spontaneous
  Country: CA (occurrence: CA)
  Receive Date: 20170208
  Receipt Date: 20170208
  Transmission Date: 20170428
  Serious: Yes (Other)
  Sender: FDA-Public Use
  Company Number: CA-TEVA-738237ACC

PATIENT
  Age: 4 Decade
  Sex: Male
  Weight: 90 kg

DRUGS (5)
  1. REACTINE [Concomitant]
     Active Substance: CETIRIZINE HYDROCHLORIDE
     Route: 048
  2. PREDNISONE. [Suspect]
     Active Substance: PREDNISONE
     Indication: PRODUCT USED FOR UNKNOWN INDICATION
     Route: 048
     Dates: start: 201608, end: 201609
  3. INFLECTRA [Concomitant]
     Active Substance: INFLIXIMAB-DYYB
     Indication: COLITIS ULCERATIVE
     Dosage: DOSE 500 MG: Q 0, 2, 6 WEEK, THEN EVERY 8 WEEKS FOR 12 MONTHS
     Route: 042
     Dates: start: 20161129
  4. IMURAN [Concomitant]
     Active Substance: AZATHIOPRINE
     Dosage: 150 MILLIGRAM DAILY;
     Route: 048
     Dates: start: 201602
  5. PREDNISONE. [Suspect]
     Active Substance: PREDNISONE
     Dosage: AS OF SEP-2016 PATIENT ADVISED TO REDUCE 5 MG WEEKLY THEREAFTER
     Route: 048
     Dates: start: 201609

REACTIONS (2)
  - Drug dependence [Unknown]
  - Therapeutic response decreased [Unknown]

NARRATIVE: CASE EVENT DATE: 201608
